FAERS Safety Report 20676710 (Version 1)
Quarter: 2022Q2

REPORT INFORMATION
  Report Type: Report from Study
  Country: BR (occurrence: BR)
  Receive Date: 20220406
  Receipt Date: 20220406
  Transmission Date: 20220721
  Serious: Yes (Hospitalization)
  Sender: FDA-Public Use
  Company Number: BR-ABBVIE-22K-020-4344091-00

PATIENT
  Sex: Female
  Weight: 79 kg

DRUGS (2)
  1. SKYRIZI [Suspect]
     Active Substance: RISANKIZUMAB-RZAA
     Indication: Psoriasis
     Route: 058
     Dates: start: 20210104
  2. CLOBETASOL PROPIONATE [Concomitant]
     Active Substance: CLOBETASOL PROPIONATE
     Indication: Pruritus
     Route: 065

REACTIONS (11)
  - Blood pressure increased [Recovered/Resolved]
  - Urinary tract infection [Recovered/Resolved]
  - Product administration error [Unknown]
  - Inflammation of wound [Not Recovered/Not Resolved]
  - Limb mass [Not Recovered/Not Resolved]
  - Blister [Not Recovered/Not Resolved]
  - Emotional disorder [Unknown]
  - Stress [Unknown]
  - COVID-19 [Recovered/Resolved]
  - Injection site pain [Unknown]
  - Psoriasis [Not Recovered/Not Resolved]

NARRATIVE: CASE EVENT DATE: 20210101
